FAERS Safety Report 6163372-6 (Version None)
Quarter: 2009Q2

REPORT INFORMATION
  Report Type: 
  Country: None (occurrence: None)
  Receive Date: 20090420
  Receipt Date: 20090420
  Transmission Date: 20091009
  Serious: No
  Sender: FDA-Public Use
  Company Number: None

PATIENT
  Age: 59 Year
  Sex: Male
  Weight: 102.3 kg

DRUGS (17)
  1. VARENICLINE [Suspect]
     Indication: SMOKING CESSATION THERAPY
     Dosage: 1 MG BID PO
     Route: 048
     Dates: start: 20080108, end: 20080408
  2. ALBUTEROL/IPRATROPIUM ORAL INHALER [Concomitant]
  3. AMOXICILLIN [Concomitant]
  4. CARVEDILOL [Concomitant]
  5. ENALAPRIL MALEATE [Concomitant]
  6. FLUNISOLIDE [Concomitant]
  7. FLUOCINONIDE [Concomitant]
  8. FORMOTEROL FUMARATE [Concomitant]
  9. FREESTYLE BLOOD GLUCOSE TEST STRIP [Concomitant]
  10. FUROSEMIDE [Concomitant]
  11. GEMFIBROZIL [Concomitant]
  12. GLIPIZIDE [Concomitant]
  13. METFORMIN HCL [Concomitant]
  14. MONTELUKAST [Concomitant]
  15. PREDNISONE [Concomitant]
  16. SIMVASTATIN [Concomitant]
  17. THEOPHYLLINE [Concomitant]

REACTIONS (1)
  - INSOMNIA [None]
